FAERS Safety Report 8255666-5 (Version None)
Quarter: 2012Q2

REPORT INFORMATION
  Report Type: 
  Country: None (occurrence: None)
  Receive Date: 20120403
  Receipt Date: 20120327
  Transmission Date: 20120825
  Serious: Yes (Life-Threatening)
  Sender: FDA-Public Use
  Company Number: PHEH2012US006828

PATIENT
  Sex: Female
  Weight: 77.098 kg

DRUGS (6)
  1. TEKTURNA [Suspect]
     Dosage: 300 MG, QD
     Route: 048
  2. NISOLDIPINE [Concomitant]
  3. GABAPENTIN [Concomitant]
  4. PROAIR HFA [Concomitant]
  5. ADVAIR DISKUS 100/50 [Concomitant]
  6. METFORMIN HCL [Concomitant]

REACTIONS (1)
  - TRANSIENT ISCHAEMIC ATTACK [None]
